FAERS Safety Report 9473307 (Version 1)
Quarter: 2013Q3

REPORT INFORMATION
  Report Type: Spontaneous
  Country: US (occurrence: US)
  Receive Date: 20130823
  Receipt Date: 20130823
  Transmission Date: 20140515
  Serious: No
  Sender: FDA-Public Use
  Company Number: US-BRISTOL-MYERS SQUIBB COMPANY-18875500

PATIENT
  Age: 72 Year
  Sex: Female

DRUGS (2)
  1. DASATINIB [Suspect]
     Dosage: INTERRUPTED ON 20DEC2012?RESTARTED ON 3JAN,STOPPED ON 29JAN2013
  2. TASIGNA [Suspect]

REACTIONS (1)
  - Abdominal discomfort [Unknown]
